FAERS Safety Report 6281448-X (Version None)
Quarter: 2009Q3

REPORT INFORMATION
  Report Type: 
  Country: None (occurrence: None)
  Receive Date: 20090724
  Receipt Date: 20090720
  Transmission Date: 20100115
  Serious: Yes (Hospitalization)
  Sender: FDA-Public Use
  Company Number: US-BRISTOL-MYERS SQUIBB COMPANY-14697007

PATIENT
  Age: 60 Year
  Sex: Male
  Weight: 107 kg

DRUGS (15)
  1. CISPLATIN [Suspect]
     Indication: TRANSITIONAL CELL CARCINOMA
     Route: 040
     Dates: start: 20090309, end: 20090601
  2. CETUXIMAB [Suspect]
     Indication: TRANSITIONAL CELL CARCINOMA
     Route: 042
     Dates: start: 20090309, end: 20090629
  3. GEMCITABINE [Suspect]
     Indication: TRANSITIONAL CELL CARCINOMA
     Route: 040
     Dates: start: 20090309, end: 20090608
  4. ASPIRIN [Concomitant]
     Dates: start: 20060101
  5. MULTI-VITAMIN [Concomitant]
     Dates: start: 20060101
  6. GLUCOSAMINE [Concomitant]
     Dates: start: 20070101
  7. CLEOCIN T [Concomitant]
     Dosage: CLEOCIN-T GEL
     Dates: start: 20070101
  8. MAGNESIUM [Concomitant]
     Dosage: TABS
     Route: 048
     Dates: start: 20090601
  9. PRILOSEC [Concomitant]
     Dates: start: 20090301
  10. SENOKOT [Concomitant]
     Dates: start: 20090301
  11. ABH [Concomitant]
     Dates: start: 20090310
  12. BENADRYL [Concomitant]
     Dates: start: 20090301
  13. DEXAMETHASONE [Concomitant]
     Dosage: TABS
     Route: 048
     Dates: start: 20090501
  14. DOXYCYCLINE [Concomitant]
     Dosage: TABS
     Dates: start: 20090501
  15. HEPARIN LOCK-FLUSH [Concomitant]
     Dosage: HEPARIN LOCK FLUSH
     Dates: start: 20090301

REACTIONS (4)
  - ABDOMINAL PAIN [None]
  - CAECITIS [None]
  - DIARRHOEA [None]
  - NAUSEA [None]
